FAERS Safety Report 12873497 (Version 3)
Quarter: 2018Q1

REPORT INFORMATION
  Report Type: Report from Study
  Country: US (occurrence: US)
  Receive Date: 20161021
  Receipt Date: 20180123
  Transmission Date: 20180508
  Serious: No
  Sender: FDA-Public Use
  Company Number: US-AMGEN-USASP2016144391

PATIENT
  Age: 82 Year
  Sex: Female

DRUGS (1)
  1. REPATHA [Suspect]
     Active Substance: EVOLOCUMAB
     Indication: BLOOD CHOLESTEROL INCREASED
     Dosage: 140 MG, Q2WK
     Route: 065
     Dates: start: 201606

REACTIONS (9)
  - Rhinorrhoea [Unknown]
  - Sinus headache [Unknown]
  - Rhinitis [Unknown]
  - Productive cough [Unknown]
  - Fatigue [Unknown]
  - Sinus congestion [Unknown]
  - Cough [Unknown]
  - Influenza like illness [Unknown]
  - Nasopharyngitis [Unknown]
